FAERS Safety Report 4817668-8 (Version None)
Quarter: 2005Q4

REPORT INFORMATION
  Report Type: 
  Country: None (occurrence: None)
  Receive Date: 20051101
  Receipt Date: 20051101
  Transmission Date: 20060501
  Serious: Yes (Hospitalization)
  Sender: FDA-Public Use
  Company Number: None

PATIENT
  Age: 72 Year
  Sex: Male
  Weight: 101.7 kg

DRUGS (16)
  1. SIMVASTATIN [Suspect]
     Indication: DYSLIPIDAEMIA
     Dosage: 20 MG DAILY  RENEWED
     Dates: start: 20050601, end: 20050901
  2. NIACIN [Suspect]
     Dosage: 250MG ORAL
     Route: 048
     Dates: end: 20050916
  3. ALLOPURINOL [Concomitant]
  4. CHLORPHENIRAMINE MALEATE [Concomitant]
  5. METOPROLOL TARTRATE [Concomitant]
  6. RANITIDINE HCL [Concomitant]
  7. SALSALATE [Concomitant]
  8. VENLAFAXINE HCL [Concomitant]
  9. SIMVASTATIN [Concomitant]
  10. BETAMETHASONE DIPR 0.05/CLOTRIM [Concomitant]
  11. QUININE SULFATE [Concomitant]
  12. FISH OIL [Concomitant]
  13. ASPIRIN [Concomitant]
  14. FOLIC ACID [Concomitant]
  15. CELECOXIB [Concomitant]
  16. VIT E [Concomitant]

REACTIONS (4)
  - ASTHENIA [None]
  - BLOOD CREATINE PHOSPHOKINASE INCREASED [None]
  - MYALGIA [None]
  - MYOSITIS [None]
